FAERS Safety Report 8979707 (Version 3)
Quarter: 2013Q2

REPORT INFORMATION
  Report Type: Report from Study
  Country: BR (occurrence: BR)
  Receive Date: 20121221
  Receipt Date: 20130515
  Transmission Date: 20140414
  Serious: Yes (Other)
  Sender: FDA-Public Use
  Company Number: PHHY2012BR117588

PATIENT
  Sex: Female
  Weight: 69 kg

DRUGS (5)
  1. GILENYA [Suspect]
     Indication: MULTIPLE SCLEROSIS
     Dosage: 0.5 MG, QD
     Route: 048
     Dates: start: 20121017
  2. VITAMIN D [Suspect]
     Indication: MULTIPLE SCLEROSIS
     Dosage: HALF DOSAGE OF 5000 IU, QD
     Route: 048
  3. GLUCOSAMINE SULFATE [Concomitant]
     Indication: ARTHROPATHY
     Dosage: 1.5G DILUTED IN HALF GLASS OF WATER, QD
     Route: 048
     Dates: start: 2010
  4. PURAN T4 [Concomitant]
     Indication: HYPOTHYROIDISM
     Dosage: 75 UG, QD
     Route: 048
     Dates: start: 201112
  5. MINERALS NOS W/VITAMINS NOS [Concomitant]
     Dosage: 1 DF, UNK
     Route: 048
     Dates: start: 201301

REACTIONS (3)
  - Central nervous system lesion [Recovering/Resolving]
  - Balance disorder [Recovering/Resolving]
  - Alopecia [Recovering/Resolving]
